FAERS Safety Report 6342071-1 (Version None)
Quarter: 2009Q3

REPORT INFORMATION
  Report Type: 
  Country: None (occurrence: None)
  Receive Date: 20090903
  Receipt Date: 20090826
  Transmission Date: 20100115
  Serious: Yes (Hospitalization)
  Sender: FDA-Public Use
  Company Number: GXKR2009IT09688

PATIENT
  Sex: Male

DRUGS (3)
  1. AMOXICILLIN TRIHYDRATE [Suspect]
  2. OMEPRAZOLE [Suspect]
  3. CLARITHROMYCIN [Concomitant]

REACTIONS (2)
  - DELIRIUM [None]
  - GENERALISED ERYTHEMA [None]
